FAERS Safety Report 22589002 (Version 1)
Quarter: 2023Q2

REPORT INFORMATION
  Report Type: Spontaneous
  Country: GB (occurrence: GB)
  Receive Date: 20230612
  Receipt Date: 20230612
  Transmission Date: 20230722
  Serious: Yes (Other)
  Sender: FDA-Public Use
  Company Number: None

PATIENT
  Age: 59 Year
  Sex: Male
  Weight: 97 kg

DRUGS (4)
  1. CANDESARTAN [Suspect]
     Active Substance: CANDESARTAN
     Indication: Hypertension
     Dosage: 1 DOSAGE FORM, QD (ONE TO BE TAKEN EACH DAY)
     Route: 065
     Dates: start: 20230515, end: 20230602
  2. BETAMETHASONE [Concomitant]
     Active Substance: BETAMETHASONE
     Indication: Hypertension
     Dosage: 30 GRAM, BID (START DATE: 19-MAY-2023, APPLY THINLY TWICE A DAY FOR UP TO 2 WEEKS)
     Route: 065
  3. CANDESARTAN [Concomitant]
     Active Substance: CANDESARTAN
     Indication: Hypertension
     Dosage: 1 DOSAGE FORM, QD (ONE TO BE TAKEN EACH DAY)
     Route: 065
     Dates: start: 20230420, end: 20230602
  4. SODIUM BICARBONATE [Concomitant]
     Active Substance: SODIUM BICARBONATE
     Indication: Excessive cerumen production
     Dosage: 10 MILLILITER, TID (USE 3 TIMES DAILY)
     Route: 065
     Dates: start: 20230420, end: 20230602

REACTIONS (1)
  - Increased tendency to bruise [Recovered/Resolved]

NARRATIVE: CASE EVENT DATE: 20230517
